FAERS Safety Report 6311123-4 (Version None)
Quarter: 2009Q3

REPORT INFORMATION
  Report Type: 
  Country: None (occurrence: None)
  Receive Date: 20090817
  Receipt Date: 20090807
  Transmission Date: 20100115
  Serious: Yes (Hospitalization, Other)
  Sender: FDA-Public Use
  Company Number: BR-ELI_LILLY_AND_COMPANY-BR200908001867

PATIENT
  Sex: Female

DRUGS (1)
  1. FORTEO [Suspect]
     Indication: OSTEOPOROSIS
     Dosage: UNK, UNKNOWN
     Route: 058

REACTIONS (4)
  - DISLOCATION OF JOINT PROSTHESIS [None]
  - DYSPNOEA [None]
  - HYPERHIDROSIS [None]
  - PLEURAL EFFUSION [None]
